FAERS Safety Report 24525236 (Version 1)
Quarter: 2024Q4

REPORT INFORMATION
  Report Type: Spontaneous
  Country: US (occurrence: US)
  Receive Date: 20241019
  Receipt Date: 20241019
  Transmission Date: 20250115
  Serious: Yes (Death)
  Sender: AMGEN
  Company Number: US-AMGEN-USASP2024206867

PATIENT
  Age: 61 Year
  Sex: Female

DRUGS (1)
  1. PREDNISONE [Suspect]
     Active Substance: PREDNISONE
     Indication: Radiation pneumonitis
     Dosage: UNK, LONG TAPER OF HIGH DOSE
     Route: 065

REACTIONS (2)
  - Acute myocardial infarction [Fatal]
  - Off label use [Unknown]
